FAERS Safety Report 7708633-1 (Version None)
Quarter: 2011Q3

REPORT INFORMATION
  Report Type: 
  Country: None (occurrence: None)
  Receive Date: 20110825
  Receipt Date: 20110812
  Transmission Date: 20111222
  Serious: No
  Sender: FDA-Public Use
  Company Number: US-B.I. PHARMACEUTICALS,INC./RIDGEFIELD-2011-BP-19941BP

PATIENT
  Sex: Male

DRUGS (6)
  1. INDERAL [Concomitant]
     Indication: HYPERTENSION
  2. VICODIN [Concomitant]
     Indication: ARTHRITIS
  3. PRADAXA [Concomitant]
     Indication: ATRIAL FIBRILLATION
     Dates: start: 20110801
  4. MONOPRIL [Concomitant]
     Indication: HYPERTENSION
  5. AGGRENOX [Suspect]
     Indication: CEREBROVASCULAR ACCIDENT
     Route: 048
     Dates: start: 20101201, end: 20101201
  6. TYLENOL-500 [Concomitant]
     Indication: ARTHRITIS

REACTIONS (1)
  - URTICARIA [None]
